FAERS Safety Report 8891340 (Version 1)
Quarter: 2012Q4

REPORT INFORMATION
  Report Type: Spontaneous
  Country: US (occurrence: None)
  Receive Date: 20121102
  Receipt Date: 20121102
  Transmission Date: 20130627
  Serious: No
  Sender: FDA-Public Use
  Company Number: None

PATIENT
  Age: 52 Year
  Sex: Female
  Weight: 59.88 kg

DRUGS (2)
  1. PEG 3350 [Suspect]
     Indication: COLONOSCOPY
     Dosage: 1/2 gallon 8 oz every 10 min
     Route: 048
     Dates: start: 20121031, end: 20121101
  2. PEG 3350 WITH FLAVOR PAKS SOL [Concomitant]

REACTIONS (2)
  - Drug ineffective [None]
  - Product quality issue [None]
